FAERS Safety Report 26179670 (Version 1)
Quarter: 2025Q4

REPORT INFORMATION
  Report Type: Spontaneous
  Country: CN (occurrence: CN)
  Receive Date: 20251219
  Receipt Date: 20251219
  Transmission Date: 20260118
  Serious: No
  Sender: ANI
  Company Number: None

PATIENT
  Age: 16 Year
  Sex: Male
  Weight: 63.9 kg

DRUGS (2)
  1. FLUVOXAMINE MALEATE [Suspect]
     Active Substance: FLUVOXAMINE MALEATE
     Indication: Depression
     Route: 048
     Dates: start: 20251118, end: 20251124
  2. BLONANSERIN [Concomitant]
     Active Substance: BLONANSERIN
     Indication: Mental disorder
     Dosage: 24.0 MILLIGRAM
     Route: 048
     Dates: start: 20251110, end: 20251125

REACTIONS (3)
  - Dizziness [Recovering/Resolving]
  - Somnolence [Recovering/Resolving]
  - Hypersomnia [Recovering/Resolving]

NARRATIVE: CASE EVENT DATE: 20251119
